FAERS Safety Report 4465391-4 (Version None)
Quarter: 2004Q4

REPORT INFORMATION
  Report Type: 
  Country: None (occurrence: None)
  Receive Date: 20041004
  Receipt Date: 20040927
  Transmission Date: 20050328
  Serious: Yes (Other)
  Sender: FDA-Public Use
  Company Number: DE-ROCHE-381495

PATIENT
  Age: 54 Year
  Sex: Female

DRUGS (1)
  1. RIVOTRIL [Suspect]
     Dosage: 7 DROPS IN THE MORNING AND 5 DROPS IN THE EVENING.
     Route: 048
     Dates: start: 20010615

REACTIONS (1)
  - TRANSIENT ISCHAEMIC ATTACK [None]
